FAERS Safety Report 24147501 (Version 1)
Quarter: 2024Q3

REPORT INFORMATION
  Report Type: Spontaneous
  Country: US (occurrence: US)
  Receive Date: 20240729
  Receipt Date: 20240729
  Transmission Date: 20241017
  Serious: Yes (Other)
  Sender: ADMA BIOLOGICS
  Company Number: US-ADMA BIOLOGICS INC.-US-2024ADM000100

PATIENT
  Age: 52 Year
  Sex: Male

DRUGS (8)
  1. HUMAN IMMUNOGLOBULIN G [Suspect]
     Active Substance: HUMAN IMMUNOGLOBULIN G
     Indication: Optic neuritis
     Dosage: 2 GRAM PER KILOGRAM
     Route: 042
  2. HUMAN IMMUNOGLOBULIN G [Suspect]
     Active Substance: HUMAN IMMUNOGLOBULIN G
     Dosage: 1 GRAM PER KILOGRAM, EVERY 3 WEEKS
     Route: 042
  3. HUMAN IMMUNOGLOBULIN G [Suspect]
     Active Substance: HUMAN IMMUNOGLOBULIN G
     Dosage: 1.2 GRAM PER KILOGRAM, EVERY 3 WEEKS
     Route: 042
  4. PREDNISONE [Concomitant]
     Active Substance: PREDNISONE
     Indication: Myelin oligodendrocyte glycoprotein antibody-associated disease
     Dosage: 60 MILLIGRAM
     Route: 048
  5. PREDNISONE [Concomitant]
     Active Substance: PREDNISONE
     Dosage: 5 MILLIGRAM
     Route: 048
  6. PREDNISONE [Concomitant]
     Active Substance: PREDNISONE
     Dosage: 1250 MILLIGRAM
     Route: 048
  7. PEMBROLIZUMAB [Concomitant]
     Active Substance: PEMBROLIZUMAB
     Indication: Metastatic malignant melanoma
     Dosage: UNK, UNK
     Route: 065
  8. TOCILIZUMAB [Concomitant]
     Active Substance: TOCILIZUMAB
     Indication: Myelin oligodendrocyte glycoprotein antibody-associated disease
     Dosage: 8 MG/KG, MONTHLY
     Route: 042

REACTIONS (4)
  - Metastatic malignant melanoma [Recovered/Resolved]
  - Myelin oligodendrocyte glycoprotein antibody-associated disease [Recovered/Resolved]
  - Condition aggravated [Recovered/Resolved]
  - Off label use [Unknown]
